FAERS Safety Report 22295346 (Version 1)
Quarter: 2023Q2

REPORT INFORMATION
  Report Type: Spontaneous
  Country: DE (occurrence: DE)
  Receive Date: 20230508
  Receipt Date: 20230508
  Transmission Date: 20230722
  Serious: Yes (Other)
  Sender: FDA-Public Use
  Company Number: None

PATIENT
  Sex: Male

DRUGS (1)
  1. PANTOPRAZOLE SODIUM [Suspect]
     Active Substance: PANTOPRAZOLE SODIUM
     Indication: Product used for unknown indication
     Dosage: UNK (EINNHAME MORGENS)
     Route: 065

REACTIONS (7)
  - Pharyngeal haemorrhage [Unknown]
  - Gastrointestinal sounds abnormal [Unknown]
  - Burning sensation [Unknown]
  - Oesophageal irritation [Unknown]
  - Flatulence [Unknown]
  - Abdominal discomfort [Unknown]
  - Abdominal distension [Unknown]
